FAERS Safety Report 11142191 (Version 7)
Quarter: 2016Q1

REPORT INFORMATION
  Report Type: Spontaneous
  Country: US (occurrence: US)
  Receive Date: 20150527
  Receipt Date: 20160208
  Transmission Date: 20160525
  Serious: Yes (Hospitalization, Disabling, Other)
  Sender: FDA-Public Use
  Company Number: US-009507513-1505USA008129

PATIENT
  Sex: Female
  Weight: 79.37 kg

DRUGS (5)
  1. ALENDRONATE SODIUM. [Suspect]
     Active Substance: ALENDRONATE SODIUM
     Dosage: 70 MG, UNK
     Dates: start: 20130424
  2. FOSAMAX PLUS D [Suspect]
     Active Substance: ALENDRONATE SODIUM\CHOLECALCIFEROL
     Indication: OSTEOPOROSIS
     Dosage: 70MG / 2800IU, QW
     Route: 048
     Dates: start: 20060221, end: 20130420
  3. FOSAMAX PLUS D [Suspect]
     Active Substance: ALENDRONATE SODIUM\CHOLECALCIFEROL
     Indication: OSTEOPENIA
  4. FOSAMAX PLUS D [Suspect]
     Active Substance: ALENDRONATE SODIUM\CHOLECALCIFEROL
     Indication: BONE DISORDER
  5. FOSAMAX [Suspect]
     Active Substance: ALENDRONATE SODIUM
     Indication: BONE DISORDER
     Dosage: 70 MG, QW
     Route: 048

REACTIONS (26)
  - Anxiety [Not Recovered/Not Resolved]
  - Blood cholesterol increased [Not Recovered/Not Resolved]
  - Hypertension [Not Recovered/Not Resolved]
  - Fracture nonunion [Unknown]
  - Angiopathy [Unknown]
  - Irritable bowel syndrome [Unknown]
  - Hyperlipidaemia [Unknown]
  - Uterine disorder [Unknown]
  - Contrast media allergy [Unknown]
  - Pain [Unknown]
  - Vomiting [Unknown]
  - Gallbladder disorder [Unknown]
  - Impaired healing [Unknown]
  - Femur fracture [Recovered/Resolved]
  - Spinal osteoarthritis [Unknown]
  - Ovarian disorder [Unknown]
  - Tonsillar disorder [Unknown]
  - Bone graft [Unknown]
  - Thrombocytopenia [Unknown]
  - Urticaria [Unknown]
  - Drug hypersensitivity [Unknown]
  - Fallopian tube disorder [Unknown]
  - Nausea [Unknown]
  - Coronary artery disease [Unknown]
  - Low turnover osteopathy [Not Recovered/Not Resolved]
  - Cardiac disorder [Unknown]

NARRATIVE: CASE EVENT DATE: 2001
